FAERS Safety Report 11267713 (Version 1)
Quarter: 2015Q3

REPORT INFORMATION
  Report Type: Spontaneous
  Country: US (occurrence: US)
  Receive Date: 20150713
  Receipt Date: 20150713
  Transmission Date: 20151125
  Serious: No
  Sender: FDA-Public Use
  Company Number: US-TAKEDA-2013MPI000828

PATIENT
  Age: 57 Year
  Sex: Female
  Weight: 104.6 kg

DRUGS (3)
  1. VELCADE [Suspect]
     Active Substance: BORTEZOMIB
     Indication: PLASMA CELL MYELOMA
     Dosage: 2.9 MG, UNK
     Route: 042
     Dates: start: 20131001, end: 20131004
  2. VELCADE [Suspect]
     Active Substance: BORTEZOMIB
     Dosage: 2.9 MG, UNK
     Route: 058
     Dates: start: 20131008, end: 20131101
  3. ZOMETA [Concomitant]
     Active Substance: ZOLEDRONIC ACID

REACTIONS (2)
  - Injection site pain [Not Recovered/Not Resolved]
  - Injection site erythema [Not Recovered/Not Resolved]

NARRATIVE: CASE EVENT DATE: 20131101
